FAERS Safety Report 4985800-1 (Version None)
Quarter: 2006Q2

REPORT INFORMATION
  Report Type: 
  Country: None (occurrence: None)
  Receive Date: 20060428
  Receipt Date: 20050707
  Transmission Date: 20061013
  Serious: No
  Sender: FDA-Public Use
  Company Number: US-GLAXOSMITHKLINE-A0565321A

PATIENT
  Age: 40 Year
  Sex: Female

DRUGS (3)
  1. AMERGE [Suspect]
     Indication: MIGRAINE
     Dosage: 2.5MG AS REQUIRED
     Route: 048
  2. SYNTHROID [Concomitant]
  3. SINGULAIR [Concomitant]

REACTIONS (1)
  - DRUG INEFFECTIVE [None]
